FAERS Safety Report 8681455 (Version 2)
Quarter: 2013Q1

REPORT INFORMATION
  Report Type: Spontaneous
  Country: US (occurrence: None)
  Receive Date: 20120706
  Receipt Date: 20130219
  Transmission Date: 20140127
  Serious: Yes (Hospitalization, Other)
  Sender: FDA-Public Use
  Company Number: DSU-2012-05221

PATIENT
  Age: 76 Year
  Sex: Male

DRUGS (1)
  1. OLMESARTAN MEDOXOMIL [Suspect]
     Indication: HYPERTENSION
     Route: 048
     Dates: end: 20090728

REACTIONS (9)
  - Malabsorption [None]
  - Diarrhoea [None]
  - Weight decreased [None]
  - Gastritis [None]
  - Malaise [None]
  - Nausea [None]
  - Renal failure [None]
  - Dehydration [None]
  - Lymphadenopathy [None]
